FAERS Safety Report 18378877 (Version 2)
Quarter: 2022Q1

REPORT INFORMATION
  Report Type: Spontaneous
  Country: CH (occurrence: CH)
  Receive Date: 20201013
  Receipt Date: 20220310
  Transmission Date: 20220423
  Serious: Yes (Death, Life-Threatening, Hospitalization, Disabling, Other)
  Sender: FDA-Public Use
  Company Number: None

PATIENT
  Age: 83 Year
  Sex: Female
  Weight: 89.6 kg

DRUGS (12)
  1. EDOXABAN TOSYLATE [Suspect]
     Active Substance: EDOXABAN TOSYLATE
     Indication: Thrombosis prophylaxis
     Dosage: 60 MG, QD
     Route: 048
     Dates: end: 202007
  2. ASSAN [Concomitant]
     Indication: Product used for unknown indication
     Dosage: UNK
  3. PEVARYL                            /00418502/ [Concomitant]
     Indication: Product used for unknown indication
     Dosage: UNK
  4. ENALAPRIL [Concomitant]
     Active Substance: ENALAPRIL
     Indication: Product used for unknown indication
     Dosage: UNK
  5. TEMESTA                            /00273201/ [Concomitant]
     Indication: Product used for unknown indication
     Dosage: AS NEEDED
  6. REMERON [Concomitant]
     Active Substance: MIRTAZAPINE
     Indication: Product used for unknown indication
     Dosage: UNK
  7. PREGABALIN [Concomitant]
     Active Substance: PREGABALIN
     Indication: Product used for unknown indication
     Dosage: UNK
  8. SEROQUEL [Concomitant]
     Active Substance: QUETIAPINE FUMARATE
     Indication: Product used for unknown indication
     Dosage: UNK
  9. ZOLPIDEM                           /00914902/ [Concomitant]
     Indication: Product used for unknown indication
     Dosage: UNK
  10. DAFALGAN [Concomitant]
     Active Substance: ACETAMINOPHEN
     Indication: Product used for unknown indication
     Dosage: UNK UNK, AS NEEDED
  11. LABETALOL                          /00422302/ [Concomitant]
     Indication: Product used for unknown indication
     Dosage: ONE TIME ORDER
     Dates: start: 20200704, end: 20200704
  12. LORAZEPAM [Concomitant]
     Active Substance: LORAZEPAM
     Indication: Product used for unknown indication
     Dosage: UNK UNK, AS NEEDED

REACTIONS (6)
  - Death [Fatal]
  - Aphasia [Not Recovered/Not Resolved]
  - Sensorimotor disorder [Not Recovered/Not Resolved]
  - Hypertension [Recovered/Resolved]
  - Cerebral haematoma [Recovering/Resolving]
  - Haemorrhagic stroke [Recovered/Resolved with Sequelae]

NARRATIVE: CASE EVENT DATE: 20200704
